FAERS Safety Report 4627759-2 (Version None)
Quarter: 2005Q2

REPORT INFORMATION
  Report Type: 
  Country: None (occurrence: None)
  Receive Date: 20050401
  Receipt Date: 20050321
  Transmission Date: 20051028
  Serious: Yes (Disabling)
  Sender: FDA-Public Use
  Company Number: 2005-00419

PATIENT
  Age: 69 Year
  Sex: Female
  Weight: 93 kg

DRUGS (12)
  1. VELCADE [Suspect]
     Indication: MULTIPLE MYELOMA
     Dosage: 2.60  MG, 2/WEEK, INTRAVENOUS
     Route: 042
     Dates: start: 20050222, end: 20050307
  2. COZAAR [Concomitant]
  3. MANIDON (VERAPAMIL HYDROCHLORIDE)TABLET [Concomitant]
  4. TEGRETOL [Concomitant]
  5. OMEPRAZOLE (OMEPRAZOLE) TABELT [Concomitant]
  6. ACICLOVIR (ACICLOVIR) TABLET [Concomitant]
  7. ACFOL (FOLIC ACID)TABLET [Concomitant]
  8. BOIK (POTASSIUM ASCORBATE) TABLET [Concomitant]
  9. SEPTRIN FORTE (SULFAMETHOXAZOLE, TRIMETHOPRIM) TABLET [Concomitant]
  10. HIGROTON (CHLORTALIDONE)TABLET [Concomitant]
  11. LOFTON (BUFLOMEDIL HYDROCHLORIDE)TABLET [Concomitant]
  12. CALCIUM (CALCIUM) TABLET [Concomitant]

REACTIONS (2)
  - DRUG INEFFECTIVE [None]
  - HYPERTENSION [None]
